FAERS Safety Report 9416148 (Version 1)
Quarter: 2013Q3

REPORT INFORMATION
  Report Type: Spontaneous
  Country: US (occurrence: None)
  Receive Date: 20130723
  Receipt Date: 20130723
  Transmission Date: 20140515
  Serious: Yes (Other)
  Sender: FDA-Public Use
  Company Number: None

PATIENT
  Age: 61 Year
  Sex: Female
  Weight: 86.18 kg

DRUGS (28)
  1. CARVEDILOL-COREG 12.5MG TEVA [Suspect]
     Indication: BLOOD PRESSURE
     Route: 048
     Dates: start: 20130510, end: 20130515
  2. CARVEDILOL-COREG 12.5MG TEVA [Suspect]
     Route: 048
     Dates: start: 20130510, end: 20130515
  3. NOVCO-AROUM [Concomitant]
  4. LOSARTAN [Concomitant]
  5. SPIRONOLACTONE [Concomitant]
  6. VESLCARE [Concomitant]
  7. PAXIL [Concomitant]
  8. VIT D [Concomitant]
  9. ALLOPURINOL [Concomitant]
  10. CYCLOBENZAPRINE [Concomitant]
  11. CLONIDINE [Concomitant]
  12. ALPRAZOLAM [Concomitant]
  13. B-12 [Concomitant]
  14. BENADRYL [Concomitant]
  15. NORCO 10-325 [Concomitant]
  16. NEXIUM [Concomitant]
  17. VIT D [Concomitant]
  18. ALLOPIRINOL [Concomitant]
  19. ALPRAZOLAM [Concomitant]
  20. VESLCARE [Concomitant]
  21. CYCLOBENZAPINE [Concomitant]
  22. FUROSEMIDE [Concomitant]
  23. LOSARTAN [Concomitant]
  24. PAROXETINE [Concomitant]
  25. CLONIDINE [Concomitant]
  26. VITAMIN-D [Concomitant]
  27. ALLERGY RELIEF [Concomitant]
  28. ANTIBLASTAMINE [Concomitant]

REACTIONS (3)
  - Swelling [None]
  - Weight increased [None]
  - Pain in extremity [None]
